FAERS Safety Report 8575690-2 (Version None)
Quarter: 2012Q3

REPORT INFORMATION
  Report Type: 
  Country: None (occurrence: None)
  Receive Date: 20120807
  Receipt Date: 20120727
  Transmission Date: 20120928
  Serious: Yes (Hospitalization)
  Sender: FDA-Public Use
  Company Number: AU-BRISTOL-MYERS SQUIBB COMPANY-16688509

PATIENT
  Age: 70 Year
  Sex: Female

DRUGS (8)
  1. ORENCIA [Suspect]
     Indication: RHEUMATOID ARTHRITIS
     Route: 042
     Dates: start: 20120516
  2. PREDNISOLONE [Concomitant]
  3. HUMALOG [Concomitant]
  4. METHOTREXATE SODIUM [Concomitant]
  5. METFORMIN HYDROCHLORIDE [Concomitant]
  6. ACTONEL [Concomitant]
  7. ASPIRIN [Concomitant]
  8. FOLIC ACID [Concomitant]

REACTIONS (4)
  - MOUTH ULCERATION [None]
  - GASTROINTESTINAL DISORDER [None]
  - BLOOD IRON DECREASED [None]
  - INFLUENZA LIKE ILLNESS [None]
